FAERS Safety Report 6268406-6 (Version None)
Quarter: 2009Q3

REPORT INFORMATION
  Report Type: 
  Country: None (occurrence: None)
  Receive Date: 20090715
  Receipt Date: 20090715
  Transmission Date: 20100115
  Serious: Yes (Hospitalization)
  Sender: FDA-Public Use
  Company Number: PHHO2009US04375

PATIENT
  Sex: Male

DRUGS (1)
  1. ALISKIREN / HCTZ ALH+TAB [Suspect]
     Indication: HYPERTENSION
     Dosage: 300/25MG
     Route: 048
     Dates: start: 20081211, end: 20090123

REACTIONS (4)
  - DEHYDRATION [None]
  - DRY MOUTH [None]
  - DRY SKIN [None]
  - POLLAKIURIA [None]
